FAERS Safety Report 26075909 (Version 1)
Quarter: 2025Q4

REPORT INFORMATION
  Report Type: Spontaneous
  Country: US (occurrence: US)
  Receive Date: 20251121
  Receipt Date: 20251121
  Transmission Date: 20260118
  Serious: Yes (Other)
  Sender: ABBVIE
  Company Number: US-ABBVIE-6555317

PATIENT
  Sex: Female

DRUGS (2)
  1. RESTASIS [Suspect]
     Active Substance: CYCLOSPORINE
     Indication: Dry eye
     Route: 047
     Dates: start: 2010
  2. CYCLOSPORINE [Suspect]
     Active Substance: CYCLOSPORINE
     Indication: Dry eye
     Dosage: CYCLOSPORINE OPHTHALMIC (AUTHORIZED GENERIC)
     Route: 065

REACTIONS (6)
  - Chemotherapy [Unknown]
  - Dacryostenosis acquired [Unknown]
  - Eye irritation [Recovered/Resolved]
  - Eyelid margin crusting [Unknown]
  - Eye pain [Unknown]
  - Dry eye [Unknown]
